FAERS Safety Report 15010347 (Version 1)
Quarter: 2018Q2

REPORT INFORMATION
  Report Type: Spontaneous
  Country: US (occurrence: US)
  Receive Date: 20180528
  Receipt Date: 20180528
  Transmission Date: 20180711
  Serious: Yes (Disabling)
  Sender: FDA-Public Use
  Company Number: None

PATIENT
  Age: 52 Year
  Sex: Male
  Weight: 89.1 kg

DRUGS (6)
  1. LEVOFLOXACIN. [Suspect]
     Active Substance: LEVOFLOXACIN
     Indication: TESTICULAR PAIN
     Dosage: ?          QUANTITY:1 DF DOSAGE FORM;?
     Route: 048
     Dates: start: 20180521, end: 20180521
  2. VITAMIN B [Concomitant]
     Active Substance: VITAMIN B
  3. MULTI VITAMIN [Concomitant]
     Active Substance: VITAMINS
  4. MAGNESIUM [Concomitant]
     Active Substance: MAGNESIUM
  5. VITAMIN D [Concomitant]
     Active Substance: CHOLECALCIFEROL
  6. CPAP MACHINE [Concomitant]

REACTIONS (8)
  - Arthralgia [None]
  - Tendon discomfort [None]
  - Gait inability [None]
  - Chest pain [None]
  - Abdominal pain upper [None]
  - Burning sensation [None]
  - Pain [None]
  - Abdominal discomfort [None]

NARRATIVE: CASE EVENT DATE: 20180521
